FAERS Safety Report 15889204 (Version 1)
Quarter: 2019Q1

REPORT INFORMATION
  Report Type: Spontaneous
  Country: DE (occurrence: DE)
  Receive Date: 20190130
  Receipt Date: 20190130
  Transmission Date: 20190417
  Serious: Yes (Other)
  Sender: FDA-Public Use
  Company Number: DE-TEVA-2019-DE-1002486

PATIENT
  Sex: Female

DRUGS (2)
  1. PROCAIN BASEN INFUSION [Suspect]
     Active Substance: PROCAINE
     Dosage: UNKNOWN FORM STRENGTH, USED 7 INFUSIONS
     Dates: start: 201810, end: 201812
  2. TRAMADOL. [Suspect]
     Active Substance: TRAMADOL
     Indication: PAIN
     Dosage: UNKNOWN FORM STRENGTH

REACTIONS (4)
  - Chronic gastritis [Unknown]
  - Nausea [Unknown]
  - Vomiting [Unknown]
  - Arrhythmia [Unknown]

NARRATIVE: CASE EVENT DATE: 201812
